FAERS Safety Report 15798751 (Version 2)
Quarter: 2019Q1

REPORT INFORMATION
  Report Type: Spontaneous
  Country: US (occurrence: US)
  Receive Date: 20190108
  Receipt Date: 20190108
  Transmission Date: 20190417
  Serious: No
  Sender: FDA-Public Use
  Company Number: US-SA-2019SA003864

PATIENT
  Sex: Female
  Weight: 45.35 kg

DRUGS (2)
  1. PRALUENT [Suspect]
     Active Substance: ALIROCUMAB
     Indication: BLOOD CHOLESTEROL
     Dosage: 75 UNK
     Route: 058
  2. PRALUENT [Suspect]
     Active Substance: ALIROCUMAB
     Dosage: 150 MG
     Route: 058

REACTIONS (12)
  - Pain [Unknown]
  - Rash [Recovered/Resolved]
  - Skin swelling [Recovered/Resolved]
  - Malaise [Unknown]
  - Pruritus [Unknown]
  - Influenza like illness [Unknown]
  - Nausea [Recovering/Resolving]
  - Vomiting [Recovered/Resolved]
  - Hypersensitivity [Unknown]
  - Rash macular [Recovered/Resolved]
  - Blood bilirubin increased [Unknown]
  - Product use issue [Unknown]
